FAERS Safety Report 7267525-5 (Version None)
Quarter: 2011Q1

REPORT INFORMATION
  Report Type: 
  Country: None (occurrence: None)
  Receive Date: 20110201
  Receipt Date: 20110121
  Transmission Date: 20110831
  Serious: Yes (Hospitalization)
  Sender: FDA-Public Use
  Company Number: CA-JNJFOC-20110106469

PATIENT
  Age: 70 Year
  Sex: Female
  Weight: 97 kg

DRUGS (15)
  1. LYRICA [Concomitant]
     Route: 048
  2. FENOFIBRATE [Concomitant]
     Indication: HYPERCHOLESTEROLAEMIA
  3. NOVO-GESIC [Concomitant]
     Route: 048
  4. SENNA [Concomitant]
     Indication: CONSTIPATION
  5. ADALAT CC [Concomitant]
     Indication: HYPERTENSION
  6. SYNTHROID [Concomitant]
     Indication: HYPOTHYROIDISM
  7. METHOTREXATE [Concomitant]
     Route: 048
  8. METFORMIN HCL [Concomitant]
     Indication: DIABETES MELLITUS
  9. DIOVAN HCT [Concomitant]
     Indication: HYPERTENSION
  10. NOVOSEMIDE [Concomitant]
     Indication: HYPERTENSION
  11. DOCUSATE SODIUM [Concomitant]
     Indication: CONSTIPATION
  12. APO-FOLIC [Concomitant]
     Indication: PROPHYLAXIS
     Route: 048
  13. CELEBREX [Concomitant]
     Route: 048
  14. NEXIUM [Concomitant]
     Indication: GASTROINTESTINAL DISORDER THERAPY
  15. SIMPONI [Suspect]
     Indication: RHEUMATOID ARTHRITIS
     Route: 058

REACTIONS (1)
  - PNEUMONIA [None]
